FAERS Safety Report 8499963-7 (Version None)
Quarter: 2012Q3

REPORT INFORMATION
  Report Type: 
  Country: None (occurrence: None)
  Receive Date: 20120710
  Receipt Date: 20120627
  Transmission Date: 20120928
  Serious: No
  Sender: FDA-Public Use
  Company Number: US-ELI_LILLY_AND_COMPANY-US201204000868

PATIENT
  Sex: Female
  Weight: 108.84 kg

DRUGS (15)
  1. WARFARIN SODIUM [Concomitant]
  2. PRAVASTATIN [Concomitant]
  3. CYMBALTA [Suspect]
     Dosage: UNK, UNKNOWN
  4. CALCIUM [Concomitant]
  5. GLUCOSAMINE [Concomitant]
  6. FLAXSEED OIL [Concomitant]
  7. LOVASTATIN [Concomitant]
  8. FLEXERIL [Concomitant]
  9. VITAMIN E                          /00110501/ [Concomitant]
  10. CYMBALTA [Suspect]
     Dosage: 60 MG, UNK
  11. DARVOCET [Concomitant]
  12. NEXIUM [Concomitant]
  13. LEVOTHYROXINE SODIUM [Concomitant]
  14. CYMBALTA [Suspect]
     Indication: MAJOR DEPRESSION
     Dosage: 90 MG, UNK
     Dates: start: 20100317
  15. LASIX [Concomitant]

REACTIONS (7)
  - PROTHROMBIN TIME ABNORMAL [None]
  - WEIGHT DECREASED [None]
  - INTERNATIONAL NORMALISED RATIO DECREASED [None]
  - CONFUSIONAL STATE [None]
  - ANXIETY [None]
  - DEPRESSION [None]
  - DYSPHAGIA [None]
